FAERS Safety Report 21972519 (Version 1)
Quarter: 2023Q1

REPORT INFORMATION
  Report Type: Report from Study
  Country: IT (occurrence: IT)
  Receive Date: 20230209
  Receipt Date: 20230209
  Transmission Date: 20230418
  Serious: Yes (Other)
  Sender: FDA-Public Use
  Company Number: None

PATIENT
  Age: 38 Year
  Sex: Female

DRUGS (3)
  1. ADALIMUMAB [Suspect]
     Active Substance: ADALIMUMAB
     Indication: Axial spondyloarthritis
     Dosage: 40 MILLIGRAM (DOSAGE: 40 UNIT OF MEASUREMENT: MILLIGRAMS FREQUENCY OF ADMINISTRATION: CYCLIC)
     Route: 058
     Dates: start: 20230115, end: 20230115
  2. ETORICOXIB [Concomitant]
     Active Substance: ETORICOXIB
     Dosage: UNK
  3. LEVOTHYROXINE SODIUM [Concomitant]
     Active Substance: LEVOTHYROXINE SODIUM
     Dosage: 50 MICROGRAM
     Route: 048

REACTIONS (2)
  - Skin reaction [Not Recovered/Not Resolved]
  - Administration site rash [Not Recovered/Not Resolved]

NARRATIVE: CASE EVENT DATE: 20230115
